FAERS Safety Report 14582588 (Version 1)
Quarter: 2018Q1

REPORT INFORMATION
  Report Type: Spontaneous
  Country: US (occurrence: US)
  Receive Date: 20180227
  Receipt Date: 20180227
  Transmission Date: 20180509
  Serious: Yes (Other)
  Sender: FDA-Public Use
  Company Number: None

PATIENT
  Age: 56 Year
  Sex: Female
  Weight: 52.65 kg

DRUGS (11)
  1. CYMBALTA [Concomitant]
     Active Substance: DULOXETINE HYDROCHLORIDE
  2. ADDERALL [Concomitant]
     Active Substance: AMPHETAMINE ASPARTATE\AMPHETAMINE SULFATE\DEXTROAMPHETAMINE SACCHARATE\DEXTROAMPHETAMINE SULFATE
  3. CARAFATE [Concomitant]
     Active Substance: SUCRALFATE
  4. TRINTELLIX [Suspect]
     Active Substance: VORTIOXETINE HYDROBROMIDE
     Indication: DEPRESSION
     Dosage: ?          QUANTITY:1 TABLET(S);?
     Route: 048
     Dates: start: 20170901, end: 20180201
  5. OMEPROZOLE [Concomitant]
     Active Substance: OMEPRAZOLE
  6. RESTORIL [Concomitant]
     Active Substance: TEMAZEPAM
  7. HYDROCODONE [Concomitant]
     Active Substance: HYDROCODONE
  8. TYLENOL [Concomitant]
     Active Substance: ACETAMINOPHEN
  9. ALPRAZOLAM. [Concomitant]
     Active Substance: ALPRAZOLAM
  10. POTASSIUM ER [Concomitant]
  11. ZOFRAN [Concomitant]
     Active Substance: ONDANSETRON HYDROCHLORIDE

REACTIONS (10)
  - Ulcer haemorrhage [None]
  - Nausea [None]
  - Weight decreased [None]
  - Asthenia [None]
  - Irritability [None]
  - Panic attack [None]
  - Abdominal pain upper [None]
  - Drug ineffective [None]
  - Anxiety [None]
  - Balance disorder [None]
